FAERS Safety Report 9633989 (Version 3)
Quarter: 2013Q4

REPORT INFORMATION
  Report Type: Spontaneous
  Country: US (occurrence: US)
  Receive Date: 20131021
  Receipt Date: 20131215
  Transmission Date: 20140711
  Serious: No
  Sender: FDA-Public Use
  Company Number: US-009507513-1310USA004585

PATIENT
  Age: 58 Year
  Sex: Male

DRUGS (2)
  1. PEGINTRON [Suspect]
     Indication: HEPATITIS C
     Dosage: 96 MICROGRAM, QW
     Route: 058
     Dates: start: 201309
  2. PEGINTRON [Suspect]
     Dosage: 96 MICROGRAM, QW
     Route: 058
     Dates: start: 201309

REACTIONS (5)
  - Influenza like illness [Unknown]
  - Dry mouth [Recovering/Resolving]
  - Dysgeusia [Recovering/Resolving]
  - Pruritus generalised [Recovering/Resolving]
  - Irritability [Recovering/Resolving]
